FAERS Safety Report 4388184-5 (Version None)
Quarter: 2004Q2

REPORT INFORMATION
  Report Type: 
  Country: None (occurrence: None)
  Receive Date: 20040625
  Receipt Date: 20040618
  Transmission Date: 20050107
  Serious: Yes (Death)
  Sender: FDA-Public Use
  Company Number: PERC20040016

PATIENT
  Age: 41 Year
  Sex: Male
  Weight: 95.709 kg

DRUGS (2)
  1. PERCOCET [Suspect]
     Dosage: PO
     Route: 048
     Dates: start: 20030601, end: 20030601
  2. ETHANOL [Suspect]
     Dosage: PO
     Route: 048
     Dates: start: 20030601, end: 20030601

REACTIONS (13)
  - BLOOD ETHANOL INCREASED [None]
  - CEREBRAL VENTRICLE DILATATION [None]
  - COMPLETED SUICIDE [None]
  - CORONARY ARTERY ATHEROSCLEROSIS [None]
  - CORONARY ARTERY STENOSIS [None]
  - DRUG SCREEN POSITIVE [None]
  - DRUG TOXICITY [None]
  - DRY SKIN [None]
  - FOAMING AT MOUTH [None]
  - FRACTURE [None]
  - HAEMATEMESIS [None]
  - MUCOUS MEMBRANE DISORDER [None]
  - SKIN DISCOLOURATION [None]
